FAERS Safety Report 9996429 (Version 2)
Quarter: 2014Q1

REPORT INFORMATION
  Report Type: Report from Study
  Country: NL (occurrence: NL)
  Receive Date: 20140311
  Receipt Date: 20140326
  Transmission Date: 20141002
  Serious: Yes (Hospitalization)
  Sender: FDA-Public Use
  Company Number: NL-GLAXOSMITHKLINE-B0975805A

PATIENT
  Age: 78 Year
  Sex: 0

DRUGS (5)
  1. PAZOPANIB [Suspect]
     Indication: RENAL CELL CARCINOMA
     Dosage: 800MG PER DAY
     Route: 048
     Dates: start: 20140208
  2. HYDROCHLOROTHIAZIDE [Concomitant]
     Dosage: 12.5MG PER DAY
     Dates: start: 20140221, end: 20140306
  3. OXYCODONE [Concomitant]
     Dosage: 5MG PER DAY
     Dates: start: 20140303, end: 20140306
  4. HALDOL [Concomitant]
     Dosage: .5MG PER DAY
     Dates: start: 20140307
  5. LORAZEPAM [Concomitant]
     Dosage: 1MG PER DAY
     Dates: start: 20140311

REACTIONS (5)
  - Dehydration [Unknown]
  - Amnesia [Recovering/Resolving]
  - Alanine aminotransferase increased [Not Recovered/Not Resolved]
  - Aspartate aminotransferase increased [Not Recovered/Not Resolved]
  - Gamma-glutamyltransferase increased [Not Recovered/Not Resolved]
